FAERS Safety Report 15956362 (Version 1)
Quarter: 2019Q1

REPORT INFORMATION
  Report Type: Spontaneous
  Country: US (occurrence: US)
  Receive Date: 20190213
  Receipt Date: 20190213
  Transmission Date: 20190417
  Serious: Yes (Hospitalization)
  Sender: FDA-Public Use
  Company Number: None

PATIENT
  Age: 82 Year
  Sex: Female
  Weight: 66.82 kg

DRUGS (10)
  1. METFORMIN [Suspect]
     Active Substance: METFORMIN HYDROCHLORIDE
     Indication: DIABETES MELLITUS
     Route: 048
  2. NORCO [Concomitant]
     Active Substance: ACETAMINOPHEN\HYDROCODONE BITARTRATE
  3. LOSARTAN 25 MG DAILY [Concomitant]
  4. LEVOFLOXACIN 750 MG DAILY [Concomitant]
  5. RANITIDINE 300 MG DAILY [Concomitant]
  6. GABAPENTIN 100 MG HS [Concomitant]
  7. SYMBICORT [Concomitant]
     Active Substance: BUDESONIDE\FORMOTEROL FUMARATE DIHYDRATE
  8. LINAGLIPTIN 5 MG DAILY [Concomitant]
  9. TIOTROPIUM DAILY [Concomitant]
  10. OMEPRAZOLE 20 MG DAILY [Concomitant]

REACTIONS (2)
  - Asthma [None]
  - Blood lactic acid increased [None]

NARRATIVE: CASE EVENT DATE: 20190210
